FAERS Safety Report 18223485 (Version 2)
Quarter: 2020Q3

REPORT INFORMATION
  Report Type: Spontaneous
  Country: JP (occurrence: JP)
  Receive Date: 20200902
  Receipt Date: 20200911
  Transmission Date: 20201103
  Serious: No
  Sender: FDA-Public Use
  Company Number: JP-AMGEN-JPNSP2020139302

PATIENT
  Age: 59 Year
  Sex: Female

DRUGS (1)
  1. REPATHA [Suspect]
     Active Substance: EVOLOCUMAB
     Indication: PROPHYLAXIS
     Dosage: 420 MILLIGRAM
     Route: 058
     Dates: start: 20190708

REACTIONS (2)
  - Off label use [Unknown]
  - Injection site bruising [Unknown]

NARRATIVE: CASE EVENT DATE: 20190708
